FAERS Safety Report 18596595 (Version 1)
Quarter: 2020Q4

REPORT INFORMATION
  Report Type: Spontaneous
  Country: DE (occurrence: DE)
  Receive Date: 20201209
  Receipt Date: 20201209
  Transmission Date: 20210114
  Serious: Yes (Life-Threatening)
  Sender: FDA-Public Use
  Company Number: DE-MYLANLABS-2020M1100191

PATIENT

DRUGS (15)
  1. METHOTREXATE. [Suspect]
     Active Substance: METHOTREXATE
     Indication: CENTRAL NERVOUS SYSTEM LYMPHOMA
     Dosage: 2.5 MILLIGRAM, Q3W (CYCLE 4+6)
  2. METHOTREXATE. [Suspect]
     Active Substance: METHOTREXATE
     Indication: CENTRAL NERVOUS SYSTEM LYMPHOMA
     Dosage: 4000 MILLIGRAM/SQ. METER, Q2W (CYCLE 1-3)
     Route: 042
  3. IFOSFAMIDE. [Suspect]
     Active Substance: IFOSFAMIDE
     Indication: CENTRAL NERVOUS SYSTEM LYMPHOMA
     Dosage: 800 MILLIGRAM/SQ. METER, Q2W (CYCLE 1-3)
     Route: 042
  4. ARA-C [Suspect]
     Active Substance: CYTARABINE
     Dosage: 10 MILLIGRAM, Q2W  (CYCLE 5)
  5. ACICLOVIR [Suspect]
     Active Substance: ACYCLOVIR
     Indication: PRODUCT USED FOR UNKNOWN INDICATION
     Dosage: UNK, RECEIVED AT EACH CYCLE
  6. SULFAMETHOXAZOLE W/TRIMETHOPRIM [Suspect]
     Active Substance: SULFAMETHOXAZOLE\TRIMETHOPRIM
     Indication: PRODUCT USED FOR UNKNOWN INDICATION
     Dosage: UNK, RECEIVED AT EACH CYCLE
  7. GRANULOCYTE COLONY STIMULATING FACTOR [Suspect]
     Active Substance: GRANULOCYTE COLONY-STIMULATING FACTOR NOS
     Indication: PROPHYLAXIS
     Dosage: UNK, RECEIVED AT EACH CYCLE
  8. RITUXIMAB. [Suspect]
     Active Substance: RITUXIMAB
     Indication: CENTRAL NERVOUS SYSTEM LYMPHOMA
     Dosage: 375 MILLIGRAM/SQ. METER, Q2W (CYCLE 1-3)
     Route: 042
  9. METHOTREXATE. [Suspect]
     Active Substance: METHOTREXATE
     Dosage: 2.5 MILLIGRAM, Q2W (CYCLE 5)
  10. PREDNISOLONE. [Suspect]
     Active Substance: PREDNISOLONE
     Indication: CENTRAL NERVOUS SYSTEM LYMPHOMA
     Dosage: 3 MILLIGRAM, Q3W (CYCLE 4+6) VIA INTRACEREBROVENTICULAR ROUTE (ICV)
  11. PREDNISOLONE. [Suspect]
     Active Substance: PREDNISOLONE
     Dosage: 3 MILLIGRAM, Q2W (CYCLE 5) VIA INTRACEREBROVENTICULAR ROUTE (ICV)
  12. METHOTREXATE. [Suspect]
     Active Substance: METHOTREXATE
     Dosage: 4000 MILLIGRAM/SQ. METER, Q2W (CYCLE 5)
     Route: 042
  13. ARA-C [Suspect]
     Active Substance: CYTARABINE
     Indication: PRODUCT USED FOR UNKNOWN INDICATION
     Dosage: 10 MILLIGRAM, Q3W (CYCLE 4+6)
  14. IFOSFAMIDE. [Suspect]
     Active Substance: IFOSFAMIDE
     Dosage: 800 MILLIGRAM/SQ. METER, Q2W (CYCLE 5)
     Route: 042
  15. ARA-C [Suspect]
     Active Substance: CYTARABINE
     Indication: CENTRAL NERVOUS SYSTEM LYMPHOMA
     Dosage: 3000 MILLIGRAM/SQ. METER, Q3W (CYCLE 4+6)
     Route: 042

REACTIONS (1)
  - Blood potassium decreased [Unknown]
